FAERS Safety Report 6676275-5 (Version None)
Quarter: 2010Q1

REPORT INFORMATION
  Report Type: 
  Country: None (occurrence: None)
  Receive Date: 20100331
  Receipt Date: 20090604
  Transmission Date: 20100710
  Serious: Yes (Other)
  Sender: FDA-Public Use
  Company Number: 2009201037

PATIENT
  Age: 71 Year
  Sex: Female
  Weight: 49.4 kg

DRUGS (2)
  1. SUNITINIB MALATE [Suspect]
     Indication: RENAL CELL CARCINOMA
     Dosage: 50 MG, 1X/DAY, EVERY DAY
     Dates: start: 20090301, end: 20090417
  2. INSULIN (INSULIN) [Concomitant]

REACTIONS (1)
  - GASTRIC PERFORATION [None]
